FAERS Safety Report 15784755 (Version 1)
Quarter: 2019Q1

REPORT INFORMATION
  Report Type: Spontaneous
  Country: GB (occurrence: GB)
  Receive Date: 20190103
  Receipt Date: 20190103
  Transmission Date: 20190417
  Serious: No
  Sender: FDA-Public Use
  Company Number: GB-ALKEM LABORATORIES LIMITED-GB-ALKEM-2017-01868

PATIENT
  Age: 48 Year
  Sex: Female

DRUGS (5)
  1. AZATHIOPRINE. [Suspect]
     Active Substance: AZATHIOPRINE
     Indication: AUTOIMMUNE HEPATITIS
     Dosage: UNK
     Route: 065
  2. MYCOPHENOLATE MOFETIL. [Suspect]
     Active Substance: MYCOPHENOLATE MOFETIL
     Indication: AUTOIMMUNE HEPATITIS
     Dosage: UNK
     Route: 065
     Dates: end: 2012
  3. 6-MERCAPTOPURINE [Suspect]
     Active Substance: MERCAPTOPURINE
     Indication: AUTOIMMUNE HEPATITIS
     Dosage: UNK
     Route: 065
  4. TACROLIMUS. [Suspect]
     Active Substance: TACROLIMUS
     Indication: AUTOIMMUNE HEPATITIS
     Route: 065
  5. PREDNISOLONE. [Concomitant]
     Active Substance: PREDNISOLONE
     Indication: AUTOIMMUNE HEPATITIS
     Dosage: UNK

REACTIONS (1)
  - Remission not achieved [Unknown]
